FAERS Safety Report 9831768 (Version 3)
Quarter: 2014Q1

REPORT INFORMATION
  Report Type: Spontaneous
  Country: US (occurrence: US)
  Receive Date: 20140121
  Receipt Date: 20140312
  Transmission Date: 20141002
  Serious: Yes (Death)
  Sender: FDA-Public Use
  Company Number: US-PFIZER INC-2014011614

PATIENT
  Age: 57 Year
  Sex: Male

DRUGS (3)
  1. SUTENT [Suspect]
     Indication: NEOPLASM MALIGNANT
     Dosage: 50 MG, 1X/DAY
     Route: 048
     Dates: start: 20140101
  2. OXYCONTIN [Concomitant]
     Dosage: UNK
  3. HYDROMORPHONE [Concomitant]
     Dosage: UNK

REACTIONS (3)
  - Death [Fatal]
  - Dyspepsia [Unknown]
  - Nausea [Unknown]
